FAERS Safety Report 7747766-0 (Version None)
Quarter: 2011Q3

REPORT INFORMATION
  Report Type: 
  Country: None (occurrence: None)
  Receive Date: 20110913
  Receipt Date: 20110902
  Transmission Date: 20111222
  Serious: Yes (Hospitalization)
  Sender: FDA-Public Use
  Company Number: US-JNJFOC-20110901903

PATIENT
  Age: 87 Year
  Sex: Female
  Weight: 77.11 kg

DRUGS (4)
  1. VICODIN [Suspect]
     Indication: PRODUCT USED FOR UNKNOWN INDICATION
     Route: 065
  2. AMBIEN [Suspect]
     Indication: PRODUCT USED FOR UNKNOWN INDICATION
     Route: 048
  3. SUTENT [Concomitant]
     Indication: METASTATIC RENAL CELL CARCINOMA
     Route: 065
     Dates: start: 20080219
  4. FLEXERIL [Suspect]
     Indication: PRODUCT USED FOR UNKNOWN INDICATION
     Route: 065

REACTIONS (3)
  - DYSARTHRIA [None]
  - HYPERTENSIVE EMERGENCY [None]
  - VIITH NERVE PARALYSIS [None]
